FAERS Safety Report 24960487 (Version 1)
Quarter: 2025Q1

REPORT INFORMATION
  Report Type: Spontaneous
  Country: GB (occurrence: GB)
  Receive Date: 20250212
  Receipt Date: 20250212
  Transmission Date: 20250409
  Serious: Yes (Hospitalization, Other)
  Sender: PFIZER
  Company Number: None

PATIENT
  Age: 62 Year
  Sex: Male

DRUGS (10)
  1. PIPERACILLIN SODIUM\TAZOBACTAM SODIUM [Suspect]
     Active Substance: PIPERACILLIN SODIUM\TAZOBACTAM SODIUM
     Dosage: 4G/500MG, 3X/DAY
  2. MOUNJARO [Concomitant]
     Active Substance: TIRZEPATIDE
     Indication: Diabetes mellitus
     Dosage: INJECT ONE 0.6 ML DOSE SUBCUTANEOUSLY ONCE EACH WEEK - WEDNESDAY MORNING 9AM FOR DIABETES
     Route: 058
  3. EMPAGLIFLOZIN [Concomitant]
     Active Substance: EMPAGLIFLOZIN
     Dosage: 25 MG TABLETS ONE TO BE TAKEN DAILY
  4. AMLODIPINE [Concomitant]
     Active Substance: AMLODIPINE BESYLATE
     Dosage: 10 MG TABLETS ONE TO BE TAKEN EACH DAY
  5. METFORMIN [Concomitant]
     Active Substance: METFORMIN HYDROCHLORIDE
     Dosage: FREQ:12 H;500 MG TABLETS TAKE 2 X 500 MG TABLETS, TWICE DAILY, WITH BREAKFAST AND EVENING MEAL
  6. OLANZAPINE [Concomitant]
     Active Substance: OLANZAPINE
     Dosage: 15 MG TABLETS ONE TO BE TAKEN EACH DAY
  7. SIMVASTATIN [Concomitant]
     Active Substance: SIMVASTATIN
     Dosage: 20 MG TABLETS ONE TO BE TAKEN AT NIGHT
  8. ALBUTEROL [Concomitant]
     Active Substance: ALBUTEROL
     Route: 055
  9. NITROGLYCERIN [Concomitant]
     Active Substance: NITROGLYCERIN
  10. TIRZEPATIDE [Concomitant]
     Active Substance: TIRZEPATIDE

REACTIONS (1)
  - Drug-induced liver injury [Recovering/Resolving]
